FAERS Safety Report 9648672 (Version 3)
Quarter: 2013Q4

REPORT INFORMATION
  Report Type: Spontaneous
  Country: US (occurrence: US)
  Receive Date: 20131028
  Receipt Date: 20131126
  Transmission Date: 20140711
  Serious: Yes (Other)
  Sender: FDA-Public Use
  Company Number: US-PFIZER INC-2013303472

PATIENT
  Sex: Female

DRUGS (5)
  1. ZOLOFT [Suspect]
     Dosage: 100 MG, UNK
  2. ZOLOFT [Suspect]
     Dosage: 50 MG, UNK
  3. SERTRALINE HCL [Suspect]
     Dosage: UNK
  4. LIPITOR [Concomitant]
     Indication: BLOOD CHOLESTEROL ABNORMAL
     Dosage: 10 MG, UNK
  5. LIPITOR [Concomitant]
     Indication: BLOOD TRIGLYCERIDES ABNORMAL

REACTIONS (3)
  - Deafness [Unknown]
  - Hearing impaired [Unknown]
  - Drug intolerance [Unknown]
